FAERS Safety Report 24334496 (Version 12)
Quarter: 2025Q3

REPORT INFORMATION
  Report Type: Spontaneous
  Country: EU (occurrence: EU)
  Receive Date: 20240918
  Receipt Date: 20250909
  Transmission Date: 20251021
  Serious: Yes (Other)
  Sender: MYLAN
  Company Number: EU-TILLOMEDPR-2024-EPL-004851

PATIENT
  Age: 37 Year
  Sex: Female

DRUGS (12)
  1. PREGABALIN [Suspect]
     Active Substance: PREGABALIN
     Indication: Bipolar II disorder
     Dosage: 50 MILLIGRAM, QD (LOW DOSE)
  2. PREGABALIN [Suspect]
     Active Substance: PREGABALIN
     Indication: Anxiety
     Dosage: 100 MILLIGRAM, QD (INCREASED DOSE 100 MG/D)
  3. PREGABALIN [Suspect]
     Active Substance: PREGABALIN
     Indication: Depression
  4. PREGABALIN [Suspect]
     Active Substance: PREGABALIN
     Indication: Alcoholism
  5. PREGABALIN [Suspect]
     Active Substance: PREGABALIN
     Indication: Alcohol use disorder
  6. ESCITALOPRAM [Suspect]
     Active Substance: ESCITALOPRAM OXALATE
     Indication: Depression
  7. LAMOTRIGINE [Suspect]
     Active Substance: LAMOTRIGINE
     Indication: Bipolar II disorder
  8. LITHIUM [Suspect]
     Active Substance: LITHIUM
     Indication: Bipolar II disorder
  9. QUETIAPINE [Concomitant]
     Active Substance: QUETIAPINE
     Indication: Bipolar II disorder
  10. QUETIAPINE [Concomitant]
     Active Substance: QUETIAPINE
     Indication: Anxiety
     Dosage: 200 MILLIGRAM, QD (INCREASED THE QUETIAPINE TO 200 MG/D)
  11. QUETIAPINE [Concomitant]
     Active Substance: QUETIAPINE
     Indication: Alcohol use disorder
  12. QUETIAPINE [Concomitant]
     Active Substance: QUETIAPINE
     Indication: Depression

REACTIONS (13)
  - Suicidal ideation [Recovered/Resolved]
  - Self-destructive behaviour [Recovered/Resolved]
  - Self-injurious ideation [Recovering/Resolving]
  - Intentional self-injury [Recovering/Resolving]
  - Bipolar II disorder [Unknown]
  - Condition aggravated [Recovering/Resolving]
  - Drug ineffective [Recovered/Resolved]
  - Depressive symptom [Recovered/Resolved]
  - Drug ineffective for unapproved indication [Recovered/Resolved]
  - Crying [Recovering/Resolving]
  - Feeling of despair [Recovering/Resolving]
  - Off label use [Unknown]
  - Product use in unapproved indication [Recovered/Resolved]
